FAERS Safety Report 7787504-9 (Version None)
Quarter: 2011Q3

REPORT INFORMATION
  Report Type: 
  Country: None (occurrence: None)
  Receive Date: 20110929
  Receipt Date: 20110809
  Transmission Date: 20111222
  Serious: Yes (Hospitalization)
  Sender: FDA-Public Use
  Company Number: IT-ASTRAZENECA-2011SE47490

PATIENT
  Age: 17765 Day
  Sex: Male

DRUGS (9)
  1. TRAMADOL HCL [Concomitant]
     Dosage: 37.5 MG + 325 MG
  2. TENORETIC 100 [Suspect]
     Indication: HYPERTENSION
     Dosage: 50 + 12.5 MG, 1 DOSAGE FORM DAILY
     Route: 048
     Dates: start: 20060421, end: 20110421
  3. ARTHROTEC [Suspect]
     Indication: BACK PAIN
     Dosage: 75 + 200 MCG, 1 DOSAGE FORM DAILY
     Route: 048
     Dates: start: 20110315, end: 20110325
  4. ORUDIS [Suspect]
     Indication: BACK PAIN
     Route: 048
     Dates: start: 20110415, end: 20110420
  5. TEVETENZ [Concomitant]
  6. VOLTAREN [Suspect]
     Indication: BACK PAIN
     Route: 048
     Dates: start: 20110101, end: 20110415
  7. TORADOL [Suspect]
     Indication: BACK PAIN
     Dosage: 20 MG/ML, 40 GTT DAILY
     Route: 048
     Dates: start: 20110325, end: 20110415
  8. AULIN [Suspect]
     Indication: BACK PAIN
     Route: 048
     Dates: start: 20110101, end: 20110415
  9. DEURSIL [Concomitant]

REACTIONS (2)
  - RETROPERITONEAL FIBROSIS [None]
  - RENAL FAILURE ACUTE [None]
